FAERS Safety Report 5877264-0 (Version None)
Quarter: 2008Q3

REPORT INFORMATION
  Report Type: 
  Country: None (occurrence: None)
  Receive Date: 20080910
  Receipt Date: 20080902
  Transmission Date: 20090109
  Serious: Yes (Hospitalization)
  Sender: FDA-Public Use
  Company Number: JP-GENENTECH-267327

PATIENT
  Sex: Female

DRUGS (21)
  1. RITUXIMAB [Suspect]
     Indication: SYSTEMIC LUPUS ERYTHEMATOSUS
     Dosage: 1000 MG, Q2W
     Route: 042
     Dates: start: 20080130, end: 20080212
  2. ACETAMINOPHEN [Concomitant]
     Indication: PREMEDICATION
     Dosage: 400 MG, UNK
     Route: 048
     Dates: start: 20080212
  3. POLARAMINE [Concomitant]
     Indication: PREMEDICATION
     Dosage: 2 MG, UNK
     Route: 048
     Dates: start: 20080130, end: 20080212
  4. SOLU-MEDROL [Concomitant]
     Indication: PREMEDICATION
     Dosage: 125 MG, UNK
     Route: 042
     Dates: start: 20080130, end: 20080212
  5. PREDONINE [Concomitant]
     Indication: SYSTEMIC LUPUS ERYTHEMATOSUS
     Route: 048
  6. TORSEMIDE [Concomitant]
     Indication: SYSTEMIC LUPUS ERYTHEMATOSUS
     Dosage: 8 MG, QD
     Route: 048
     Dates: start: 20080424, end: 20080523
  7. ALFACALCIDOL [Concomitant]
     Indication: OSTEOPOROSIS
     Dosage: 2 A?G, QD
     Route: 048
     Dates: start: 20080424
  8. MUCOSTA [Concomitant]
     Indication: PROPHYLAXIS
     Dosage: 100 MG, TID
     Route: 048
     Dates: start: 20080424, end: 20080530
  9. LAC-B [Concomitant]
     Indication: IRRITABLE BOWEL SYNDROME
     Dosage: 1 G, TID
     Route: 048
     Dates: start: 20080424
  10. POLYCARBOPHIL [Concomitant]
     Indication: IRRITABLE BOWEL SYNDROME
     Dosage: 500 MG, TID
     Dates: start: 20080424, end: 20080612
  11. BUSCOPAN [Concomitant]
     Indication: IRRITABLE BOWEL SYNDROME
     Dosage: 20 MG, TID
     Route: 048
     Dates: start: 20080424, end: 20080526
  12. LANSOPRAZOLE [Concomitant]
     Indication: PROPHYLAXIS
     Dosage: 15 MG, BID
     Route: 048
     Dates: start: 20080424
  13. DEPAS [Concomitant]
     Indication: SPINAL OSTEOARTHRITIS
     Dosage: 0.5 MG, TID
     Route: 048
     Dates: start: 20080424
  14. CONCOMITANT DRUG [Concomitant]
     Indication: SYSTEMIC LUPUS ERYTHEMATOSUS
     Dosage: 3 G, TID
     Dates: start: 20080424, end: 20080725
  15. BLOPRESS [Concomitant]
     Indication: HYPERTENSION
     Dosage: 2 MG, QD
     Route: 048
     Dates: start: 20080424
  16. PERSANTINE [Concomitant]
     Indication: SYSTEMIC LUPUS ERYTHEMATOSUS
     Dosage: 150 MG, BID
     Route: 048
     Dates: start: 20080424
  17. MOSAPRIDE CITRATE [Concomitant]
     Indication: IRRITABLE BOWEL SYNDROME
     Dosage: 1 MG, TID
     Route: 048
     Dates: start: 20080424
  18. LENDORMIN [Concomitant]
     Indication: INSOMNIA
     Dosage: 0.25 MG, TID
     Route: 048
     Dates: start: 20080424, end: 20080605
  19. KETOPROFEN [Concomitant]
     Indication: SYSTEMIC LUPUS ERYTHEMATOSUS
     Dosage: UNK
     Dates: start: 20080424
  20. CONCOMITANT DRUG [Concomitant]
     Indication: RHINORRHOEA
     Dosage: 100 MG, BID
     Route: 048
     Dates: start: 20080424, end: 20080605
  21. NAUZELIN [Concomitant]
     Indication: VOMITING
     Dosage: UNK
     Route: 048
     Dates: start: 20080424, end: 20080605

REACTIONS (1)
  - PERICARDITIS [None]
